FAERS Safety Report 24308355 (Version 1)
Quarter: 2024Q3

REPORT INFORMATION
  Report Type: Spontaneous
  Country: GB (occurrence: GB)
  Receive Date: 20240911
  Receipt Date: 20240911
  Transmission Date: 20241016
  Serious: Yes (Other)
  Sender: TEVA
  Company Number: None

PATIENT

DRUGS (1)
  1. LOSARTAN [Suspect]
     Active Substance: LOSARTAN\LOSARTAN POTASSIUM
     Dosage: LOSTARTAN POTASSIUM
     Route: 065

REACTIONS (2)
  - Diverticulum [Unknown]
  - Rectal haemorrhage [Unknown]
